FAERS Safety Report 11081850 (Version 4)
Quarter: 2015Q3

REPORT INFORMATION
  Report Type: Report from Study
  Country: DE (occurrence: DE)
  Receive Date: 20150501
  Receipt Date: 20150701
  Transmission Date: 20151125
  Serious: Yes (Hospitalization)
  Sender: FDA-Public Use
  Company Number: DE-MERCK-1504DEU022906

PATIENT
  Age: 71 Year
  Sex: Female
  Weight: 71 kg

DRUGS (15)
  1. POLYETHYLENE GLYCOL [Concomitant]
     Active Substance: POLYETHYLENE GLYCOLS
     Indication: CONSTIPATION PROPHYLAXIS
     Dosage: TOTAL DAILY DOSE 39.375 G, TID
     Route: 048
     Dates: start: 201312
  2. LORAZEPAM. [Concomitant]
     Active Substance: LORAZEPAM
     Indication: ANXIETY DISORDER
     Dosage: TOTAL DAILY 0.5 MG, PRN
     Route: 048
     Dates: start: 20140210
  3. PREGABALIN. [Concomitant]
     Active Substance: PREGABALIN
     Indication: ANXIETY DISORDER
     Dosage: TOTAL DAILY DOSE 300 MG, BID
     Route: 048
     Dates: start: 201503
  4. ENOXAPARIN SODIUM. [Concomitant]
     Active Substance: ENOXAPARIN SODIUM
     Indication: THROMBOSIS PROPHYLAXIS
     Dosage: TOTAL DAILY DOSE 1.4 MG, BID
     Route: 058
     Dates: start: 201312
  5. ETORICOXIB [Concomitant]
     Active Substance: ETORICOXIB
     Indication: BONE PAIN
     Dosage: 90 MG, QD
     Route: 048
     Dates: start: 201312
  6. LANSOPRAZOLE. [Concomitant]
     Active Substance: LANSOPRAZOLE
     Indication: PROPHYLAXIS
     Dosage: 30 MG, QD
     Route: 048
     Dates: start: 201312
  7. FOLSAN [Concomitant]
     Active Substance: FOLIC ACID
     Indication: PROPHYLAXIS
     Dosage: 0.4 MG, QD
     Route: 048
     Dates: start: 20150220
  8. MORPHINE [Concomitant]
     Active Substance: MORPHINE
     Indication: CHEST PAIN
     Dosage: TOTAL DAILY DOSE 40 MG, BID
     Route: 048
     Dates: start: 201312
  9. L-THYROXIN [Concomitant]
     Active Substance: LEVOTHYROXINE SODIUM
     Indication: THYROID DISORDER
     Dosage: 50 MICROGRAM, QD
     Route: 048
     Dates: start: 20150217
  10. TORSEMIDE. [Concomitant]
     Active Substance: TORSEMIDE
     Indication: PROPHYLAXIS
     Dosage: 10 MG, QD
     Route: 048
     Dates: start: 201411
  11. LORAZEPAM. [Concomitant]
     Active Substance: LORAZEPAM
     Indication: INSOMNIA
     Dosage: TOTAL DAILY DOSE 0.5 MG, PRN
     Route: 048
     Dates: start: 20150318, end: 20150326
  12. DIGOXIN. [Concomitant]
     Active Substance: DIGOXIN
     Indication: TACHYCARDIA
     Dosage: 0.2 MG, QD
     Route: 048
     Dates: start: 20150318, end: 20150326
  13. LORAZEPAM. [Concomitant]
     Active Substance: LORAZEPAM
     Indication: INSOMNIA
     Dosage: TOTAL DAILY 0.5 MG, PRN
     Route: 048
     Dates: start: 20150318, end: 20150326
  14. PEMBROLIZUMAB. [Suspect]
     Active Substance: PEMBROLIZUMAB
     Indication: NON-SMALL CELL LUNG CANCER
     Dosage: 10 MG/KG, Q3W
     Route: 042
     Dates: start: 20150317, end: 20150317
  15. METOPROLOL [Concomitant]
     Active Substance: METOPROLOL
     Indication: HYPERTENSION
     Dosage: TOTAL DAILY DOSE 95 MG, BID
     Route: 048
     Dates: start: 201312

REACTIONS (1)
  - Pneumonia [Recovered/Resolved]

NARRATIVE: CASE EVENT DATE: 20150327
